FAERS Safety Report 5355585-8 (Version None)
Quarter: 2007Q2

REPORT INFORMATION
  Report Type: 
  Country: None (occurrence: None)
  Receive Date: 20070613
  Receipt Date: 20070608
  Transmission Date: 20071010
  Serious: Yes (Other)
  Sender: FDA-Public Use
  Company Number: A0652639A

PATIENT
  Age: 50 Year
  Sex: Female

DRUGS (2)
  1. REQUIP [Suspect]
     Indication: RESTLESS LEGS SYNDROME
     Dosage: 2MG FOUR TIMES PER DAY
     Route: 048
  2. SINEMET [Concomitant]

REACTIONS (1)
  - GLAUCOMA [None]
